FAERS Safety Report 6264681-2 (Version None)
Quarter: 2009Q3

REPORT INFORMATION
  Report Type: 
  Country: None (occurrence: None)
  Receive Date: 20090710
  Receipt Date: 20090702
  Transmission Date: 20100115
  Serious: Yes (Hospitalization)
  Sender: FDA-Public Use
  Company Number: US-GENENTECH-286199

PATIENT
  Sex: Female
  Weight: 48.073 kg

DRUGS (24)
  1. BLINDED ANTI-CD40 [Suspect]
     Indication: DIFFUSE LARGE B-CELL LYMPHOMA
     Dosage: 8 MG/KG, Q3W
     Route: 042
     Dates: start: 20090422, end: 20090618
  2. BLINDED PLACEBO [Suspect]
     Indication: DIFFUSE LARGE B-CELL LYMPHOMA
     Dosage: 8 MG/KG, Q3W
     Route: 042
     Dates: start: 20090422, end: 20090618
  3. BLINDED ANTI-CD40 [Suspect]
     Dosage: 2 MG/KG, X1
     Route: 042
     Dates: start: 20090414, end: 20090414
  4. BLINDED PLACEBO [Suspect]
     Dosage: 2 MG/KG, X1
     Route: 042
     Dates: start: 20090414, end: 20090414
  5. BLINDED ANTI-CD40 [Suspect]
     Dosage: 4 MG/KG, X1
     Route: 042
     Dates: start: 20090417, end: 20090417
  6. BLINDED PLACEBO [Suspect]
     Dosage: 4 MG/KG, X1
     Route: 042
     Dates: start: 20090417, end: 20090417
  7. RITUXAN [Suspect]
     Indication: DIFFUSE LARGE B-CELL LYMPHOMA
     Dosage: 375 MG/M2, Q3W
     Route: 042
     Dates: start: 20090413, end: 20090611
  8. ETOPOSIDE [Suspect]
     Indication: DIFFUSE LARGE B-CELL LYMPHOMA
     Dosage: 100 MG/M2, Q3W
     Route: 042
     Dates: start: 20090415
  9. ETOPOSIDE [Suspect]
     Dosage: 100 MG/M2, Q3W
     Route: 042
     Dates: start: 20090416
  10. ETOPOSIDE [Suspect]
     Dosage: 100 MG/M2, Q3W
     Route: 042
     Dates: start: 20090417, end: 20090614
  11. CARBOPLATIN [Suspect]
     Indication: DIFFUSE LARGE B-CELL LYMPHOMA
     Dosage: 5 UNK, Q3W
     Route: 042
     Dates: start: 20090416, end: 20090613
  12. IFOSFAMIDE [Suspect]
     Indication: DIFFUSE LARGE B-CELL LYMPHOMA
     Dosage: 5 G/M2, Q3W
     Route: 042
     Dates: start: 20090416, end: 20090613
  13. SERTRALINE [Concomitant]
     Indication: DRUG USE FOR UNKNOWN INDICATION
  14. SYNTHROID [Concomitant]
     Indication: DRUG USE FOR UNKNOWN INDICATION
  15. VIROPTIC [Concomitant]
     Indication: DRUG USE FOR UNKNOWN INDICATION
  16. VITAMIN B-12 [Concomitant]
     Indication: DRUG USE FOR UNKNOWN INDICATION
  17. MULTI-VITAMINS [Concomitant]
     Indication: DRUG USE FOR UNKNOWN INDICATION
  18. ZYRTEC [Concomitant]
     Indication: DRUG USE FOR UNKNOWN INDICATION
  19. DEXAMETHASONE [Concomitant]
     Indication: DRUG USE FOR UNKNOWN INDICATION
  20. FLUTICASONE PROPIONATE/SALMETEROL XINAFOATE [Concomitant]
     Indication: DRUG USE FOR UNKNOWN INDICATION
  21. ALBUTEROL [Concomitant]
     Indication: DRUG USE FOR UNKNOWN INDICATION
  22. MINOCYCLINE HCL [Concomitant]
     Indication: DRUG USE FOR UNKNOWN INDICATION
  23. PANTOPRAZOLE SODIUM [Concomitant]
     Indication: DRUG USE FOR UNKNOWN INDICATION
  24. VALTREX [Concomitant]
     Indication: DRUG USE FOR UNKNOWN INDICATION

REACTIONS (1)
  - FEBRILE NEUTROPENIA [None]
